FAERS Safety Report 8287842-X (Version None)
Quarter: 2012Q2

REPORT INFORMATION
  Report Type: 
  Country: None (occurrence: None)
  Receive Date: 20120411
  Receipt Date: 20120411
  Transmission Date: 20120825
  Serious: No
  Sender: FDA-Public Use
  Company Number: None

PATIENT
  Sex: Female
  Weight: 89.8122 kg

DRUGS (2)
  1. ALENDRONATE SODIUM [Suspect]
     Indication: OSTEOPENIA
     Dosage: 1 TABLET WKLY
     Dates: start: 20120301, end: 20120324
  2. ALENDRONATE SODIUM [Suspect]

REACTIONS (3)
  - CONSTIPATION [None]
  - DECREASED ACTIVITY [None]
  - FATIGUE [None]
